FAERS Safety Report 7430410-X (Version None)
Quarter: 2011Q2

REPORT INFORMATION
  Report Type: 
  Country: None (occurrence: None)
  Receive Date: 20110421
  Receipt Date: 20101018
  Transmission Date: 20111010
  Serious: No
  Sender: FDA-Public Use
  Company Number: US-ASTRAZENECA-2010SE49404

PATIENT
  Sex: Female

DRUGS (1)
  1. TOPROL-XL [Suspect]
     Indication: HYPERTENSION
     Route: 048

REACTIONS (12)
  - GLAUCOMA [None]
  - ESSENTIAL HYPERTENSION [None]
  - HIATUS HERNIA [None]
  - BACK PAIN [None]
  - GASTROOESOPHAGEAL REFLUX DISEASE [None]
  - TYPE 2 DIABETES MELLITUS [None]
  - OBESITY [None]
  - RESTLESS LEGS SYNDROME [None]
  - LUMBAR SPINAL STENOSIS [None]
  - HYPERLIPIDAEMIA [None]
  - ANXIETY [None]
  - DRUG INEFFECTIVE [None]
